FAERS Safety Report 7012558-7 (Version None)
Quarter: 2010Q3

REPORT INFORMATION
  Report Type: 
  Country: None (occurrence: None)
  Receive Date: 20100922
  Receipt Date: 20100922
  Transmission Date: 20110219
  Serious: No
  Sender: FDA-Public Use
  Company Number: None

PATIENT
  Age: 10 Day
  Sex: Male
  Weight: 83.9154 kg

DRUGS (1)
  1. OXYCONTIN [Suspect]
     Indication: INTERVERTEBRAL DISC PROTRUSION
     Dosage: 80 MG  4 DAILY PO
     Route: 048
     Dates: start: 20100911, end: 20100920

REACTIONS (6)
  - ABDOMINAL DISTENSION [None]
  - ABDOMINAL PAIN [None]
  - DRUG EFFECT DECREASED [None]
  - HEADACHE [None]
  - MENTAL IMPAIRMENT [None]
  - PRODUCT FORMULATION ISSUE [None]
